FAERS Safety Report 17006840 (Version 1)
Quarter: 2019Q4

REPORT INFORMATION
  Report Type: Spontaneous
  Country: US (occurrence: US)
  Receive Date: 20191106
  Receipt Date: 20191106
  Transmission Date: 20200122
  Serious: Yes (Death)
  Sender: FDA-Public Use
  Company Number: None

PATIENT
  Age: 87 Year
  Sex: Male

DRUGS (11)
  1. PANTOPRAZOLE [Concomitant]
     Active Substance: PANTOPRAZOLE
  2. TAMSULOSIN [Concomitant]
     Active Substance: TAMSULOSIN
  3. XTANDI [Concomitant]
     Active Substance: ENZALUTAMIDE
  4. LUPRON DEPOT [Suspect]
     Active Substance: LEUPROLIDE ACETATE
     Indication: PROSTATE CANCER
     Dosage: ?          OTHER FREQUENCY:EVERY 3 MONTHS;?
     Route: 058
     Dates: start: 20140404, end: 20191014
  5. XARELTO [Concomitant]
     Active Substance: RIVAROXABAN
  6. RANEXA [Concomitant]
     Active Substance: RANOLAZINE
  7. METOPROLOL. [Concomitant]
     Active Substance: METOPROLOL
  8. GLYBURIDE. [Concomitant]
     Active Substance: GLYBURIDE
  9. ISOSORB [Concomitant]
  10. METFORMIN [Concomitant]
     Active Substance: METFORMIN HYDROCHLORIDE
  11. PRAVASTATIN. [Concomitant]
     Active Substance: PRAVASTATIN

REACTIONS (1)
  - Death [None]

NARRATIVE: CASE EVENT DATE: 20191014
